FAERS Safety Report 5819190-9 (Version None)
Quarter: 2008Q3

REPORT INFORMATION
  Report Type: 
  Country: None (occurrence: None)
  Receive Date: 20080723
  Receipt Date: 20080718
  Transmission Date: 20090109
  Serious: Yes (Life-Threatening, Hospitalization)
  Sender: FDA-Public Use
  Company Number: B0529881A

PATIENT
  Age: 61 Year
  Sex: Female

DRUGS (2)
  1. RANITIDINE HCL [Suspect]
     Route: 042
     Dates: start: 20071121, end: 20071121
  2. ZOPHREN [Concomitant]
     Route: 042
     Dates: start: 20071121, end: 20071121

REACTIONS (8)
  - ANAPHYLACTIC SHOCK [None]
  - BLOOD PRESSURE SYSTOLIC DECREASED [None]
  - BRONCHOSPASM [None]
  - CIRCULATORY COLLAPSE [None]
  - CYANOSIS [None]
  - OXYGEN SATURATION DECREASED [None]
  - PULMONARY CONGESTION [None]
  - TRYPTASE [None]
